FAERS Safety Report 4815947-1 (Version None)
Quarter: 2005Q4

REPORT INFORMATION
  Report Type: 
  Country: None (occurrence: None)
  Receive Date: 20051031
  Receipt Date: 20051021
  Transmission Date: 20060501
  Serious: Yes (Death, Other)
  Sender: FDA-Public Use
  Company Number: ES-ABBOTT-05P-144-0314888-00

PATIENT
  Age: 49 Year
  Sex: Male

DRUGS (6)
  1. KALETRA [Suspect]
     Indication: HIV INFECTION
     Route: 048
     Dates: start: 20030220, end: 20050323
  2. METHADONE HCL [Suspect]
     Indication: DRUG DEPENDENCE
     Route: 048
     Dates: end: 20050301
  3. SPIRIVA [Suspect]
     Indication: CHRONIC OBSTRUCTIVE PULMONARY DISEASE
     Route: 048
     Dates: end: 20050301
  4. SIMVICORT [Concomitant]
     Indication: CHRONIC OBSTRUCTIVE PULMONARY DISEASE
     Route: 048
     Dates: end: 20050301
  5. STAVUDINE [Concomitant]
     Indication: HIV INFECTION
     Dates: start: 20050220
  6. LAMIVUDINE [Concomitant]
     Indication: HIV INFECTION
     Dates: start: 20050220

REACTIONS (3)
  - BRONCHOSPASM [None]
  - PNEUMONIA [None]
  - SEPSIS [None]
